FAERS Safety Report 25724460 (Version 1)
Quarter: 2025Q3

REPORT INFORMATION
  Report Type: Report from Study
  Country: PK (occurrence: PK)
  Receive Date: 20250826
  Receipt Date: 20250826
  Transmission Date: 20251021
  Serious: Yes (Other)
  Sender: ROCHE
  Company Number: PK-ROCHE-10000367011

PATIENT
  Age: 52 Year
  Sex: Female

DRUGS (2)
  1. MABTHERA [Suspect]
     Active Substance: RITUXIMAB
     Indication: Diffuse large B-cell lymphoma
     Route: 058
     Dates: start: 20210707, end: 20211026
  2. GAZYVA [Suspect]
     Active Substance: OBINUTUZUMAB
     Indication: Follicular lymphoma
     Dosage: 8 DOSE, CONSISTING OF SIX CYCLES OF GAZYVA (OBINUTUZUMAB) 1000MG, ALIGNED WITH CURRENT PROTOCOL RECO
     Route: 042

REACTIONS (2)
  - Follicular lymphoma [Unknown]
  - Lymphoma transformation [Unknown]

NARRATIVE: CASE EVENT DATE: 20230601
